FAERS Safety Report 23203139 (Version 1)
Quarter: 2023Q4

REPORT INFORMATION
  Report Type: Spontaneous
  Country: EG (occurrence: EG)
  Receive Date: 20231120
  Receipt Date: 20231120
  Transmission Date: 20240109
  Serious: Yes (Life-Threatening, Hospitalization, Other)
  Sender: FDA-Public Use
  Company Number: EG-NOVOPROD-1139416

PATIENT
  Age: 74 Year
  Sex: Female
  Weight: 77 kg

DRUGS (13)
  1. ACTRAPID [Suspect]
     Active Substance: INSULIN HUMAN
     Indication: Diabetes mellitus
     Dosage: 10 IU, TID
     Route: 058
  2. LIPONA [ATORVASTATIN CALCIUM] [Concomitant]
     Indication: Blood cholesterol abnormal
     Dosage: 1 TAB/DAY
     Route: 048
  3. ARIMIDEX [Concomitant]
     Active Substance: ANASTROZOLE
     Indication: Neoplasm malignant
     Dosage: 1 TAB/DAY
     Route: 048
     Dates: start: 20211228
  4. LANOXIN [Concomitant]
     Active Substance: DIGOXIN
     Indication: Cardiac disorder
     Dosage: 0.5 TAB/DAY
     Route: 048
  5. LANTUS [Concomitant]
     Active Substance: INSULIN GLARGINE
     Indication: Diabetes mellitus
     Dosage: SHE WAS TAKING 10U, CURRENT DOSE IS 5U
     Route: 058
  6. ANGIOFOX [Concomitant]
     Indication: Cardiac disorder
     Dosage: 1 TAB/DAY AFTER BREAKFAST
     Route: 048
  7. HYDROCHLOROTHIAZIDE\VALSARTAN [Concomitant]
     Active Substance: HYDROCHLOROTHIAZIDE\VALSARTAN
     Indication: Hypertension
     Dosage: 0.5 TAB/DAY
     Route: 048
  8. TORSEMIDE [Concomitant]
     Active Substance: TORSEMIDE
     Indication: Diuretic therapy
     Dosage: 1 TAB/DAY EMPTY STOMACH
     Route: 048
  9. SPANIELA [Concomitant]
     Indication: Cardiac disorder
     Dosage: 1 TAB/DAY AT NIGHT
     Route: 048
  10. CIDOPHAGE [Concomitant]
     Indication: Diabetes mellitus
     Dosage: 2 TAB/DAY
     Route: 048
  11. ATOREZA [Concomitant]
     Indication: Blood cholesterol abnormal
     Dosage: 1 TAB/DAY
     Route: 048
  12. LEVOTHYROXINE [Concomitant]
     Active Substance: LEVOTHYROXINE
     Indication: Thyroid disorder
     Dosage: 1 TAB/DAY ON EMPTY STOMACH
  13. WARFARIN SODIUM [Concomitant]
     Active Substance: WARFARIN SODIUM
     Indication: Anticoagulant therapy
     Dosage: 1 TAB/DAY
     Route: 048

REACTIONS (1)
  - Breast cancer [Recovered/Resolved]

NARRATIVE: CASE EVENT DATE: 20211103
